FAERS Safety Report 20411490 (Version 2)
Quarter: 2022Q1

REPORT INFORMATION
  Report Type: Report from Study
  Country: US (occurrence: US)
  Receive Date: 20220201
  Receipt Date: 20220206
  Transmission Date: 20220423
  Serious: No
  Sender: FDA-Public Use
  Company Number: US-NOVARTISTESTPH-NVSC2022US021332

PATIENT
  Sex: Female

DRUGS (1)
  1. KESIMPTA [Suspect]
     Active Substance: OFATUMUMAB
     Indication: Relapsing multiple sclerosis
     Dosage: UNK (ONCE A WEEK)
     Route: 058
     Dates: start: 20210128

REACTIONS (4)
  - Pain [Unknown]
  - Back pain [Unknown]
  - Headache [Unknown]
  - Therapy non-responder [Unknown]
